FAERS Safety Report 8069935-5 (Version None)
Quarter: 2012Q1

REPORT INFORMATION
  Report Type: 
  Country: None (occurrence: None)
  Receive Date: 20120125
  Receipt Date: 20120118
  Transmission Date: 20120608
  Serious: Yes (Other)
  Sender: FDA-Public Use
  Company Number: BR-SANOFI-AVENTIS-2011SA080602

PATIENT
  Age: 45 Year
  Sex: Female
  Weight: 68 kg

DRUGS (2)
  1. AUTOPEN 24 [Suspect]
     Indication: DEVICE THERAPY
     Dates: start: 20090101
  2. LANTUS [Suspect]
     Route: 058
     Dates: start: 20090101

REACTIONS (3)
  - RENAL IMPAIRMENT [None]
  - INJECTION SITE PAIN [None]
  - ANAEMIA [None]
